FAERS Safety Report 8288008-X (Version None)
Quarter: 2012Q2

REPORT INFORMATION
  Report Type: 
  Country: None (occurrence: None)
  Receive Date: 20120416
  Receipt Date: 20120220
  Transmission Date: 20120825
  Serious: Yes (Other)
  Sender: FDA-Public Use
  Company Number: US-GLAXOSMITHKLINE-A0956069A

PATIENT
  Age: 20 Year
  Sex: Female

DRUGS (1)
  1. TREXIMET [Suspect]
     Indication: MIGRAINE
     Dosage: 1TAB AS REQUIRED
     Route: 048
     Dates: start: 20101101

REACTIONS (5)
  - CYANOSIS [None]
  - ANXIETY [None]
  - ASTHMA [None]
  - PRODUCT QUALITY ISSUE [None]
  - NONSPECIFIC REACTION [None]
